FAERS Safety Report 5709728-4 (Version None)
Quarter: 2008Q2

REPORT INFORMATION
  Report Type: 
  Country: None (occurrence: None)
  Receive Date: 20080418
  Receipt Date: 20070904
  Transmission Date: 20081010
  Serious: No
  Sender: FDA-Public Use
  Company Number: US-ASTRAZENECA-2007UW20881

PATIENT
  Age: 81 Year
  Sex: Male
  Weight: 80.7 kg

DRUGS (1)
  1. CASODEX [Suspect]
     Indication: PROSTATE CANCER
     Route: 048
     Dates: start: 20070501

REACTIONS (2)
  - BREAST PAIN [None]
  - BREAST TENDERNESS [None]
